FAERS Safety Report 5124828-8 (Version None)
Quarter: 2006Q4

REPORT INFORMATION
  Report Type: 
  Country: None (occurrence: None)
  Receive Date: 20061011
  Receipt Date: 20060903
  Transmission Date: 20070319
  Serious: Yes (Other)
  Sender: FDA-Public Use
  Company Number: US-ROCHE-462036

PATIENT
  Age: 52 Year
  Sex: Male

DRUGS (2)
  1. PEGASYS [Suspect]
     Dosage: ROUTE REPORTED AS INJECTION. DOSAGE REGIMEN REPORTED AS 180 UNK.
     Route: 050
     Dates: start: 20060106
  2. COPEGUS [Suspect]
     Route: 048
     Dates: start: 20060106

REACTIONS (10)
  - BASAL CELL CARCINOMA [None]
  - CONSTIPATION [None]
  - CYSTITIS INTERSTITIAL [None]
  - DIARRHOEA [None]
  - HAEMOGLOBIN DECREASED [None]
  - MUSCLE SPASMS [None]
  - SQUAMOUS CELL CARCINOMA OF SKIN [None]
  - STAPHYLOCOCCAL INFECTION [None]
  - URINARY TRACT INFECTION [None]
  - WHITE BLOOD CELL COUNT DECREASED [None]
